FAERS Safety Report 6062668-6 (Version None)
Quarter: 2009Q1

REPORT INFORMATION
  Report Type: 
  Country: None (occurrence: None)
  Receive Date: 20090203
  Receipt Date: 20090123
  Transmission Date: 20090719
  Serious: Yes (Hospitalization)
  Sender: FDA-Public Use
  Company Number: US-PURDUE-DEU_2009_0004982

PATIENT
  Age: 42 Year
  Sex: Male

DRUGS (3)
  1. POVIDONE IODINE [Suspect]
     Indication: FOLLICULITIS
     Dosage: UNK, SEE TEXT
     Route: 061
  2. METOPROLOL TARTRATE [Concomitant]
  3. DILTIAZEM [Concomitant]

REACTIONS (1)
  - RASH [None]
